FAERS Safety Report 7214303-9 (Version None)
Quarter: 2011Q1

REPORT INFORMATION
  Report Type: 
  Country: None (occurrence: None)
  Receive Date: 20110107
  Receipt Date: 20101228
  Transmission Date: 20110831
  Serious: Yes (Hospitalization)
  Sender: FDA-Public Use
  Company Number: US-BRISTOL-MYERS SQUIBB COMPANY-15472566

PATIENT
  Age: 66 Year
  Sex: Male

DRUGS (5)
  1. CARBOPLATIN [Suspect]
     Indication: NON-SMALL CELL LUNG CANCER
     Dosage: 1DF=6 AUC; ON DAY 1,22
     Route: 042
     Dates: start: 20100921
  2. PACLITAXEL [Suspect]
     Indication: NON-SMALL CELL LUNG CANCER
     Dosage: ON DAY 1,22
     Route: 042
     Dates: start: 20100921
  3. DILAUDID [Concomitant]
  4. FENTANYL [Concomitant]
  5. CETUXIMAB [Suspect]
     Indication: NON-SMALL CELL LUNG CANCER
     Dosage: 400MG/M2:21SEP2010; 250MG/M2:05OCT2010 TO UNK (CYCLE 1 DAY 15)
     Route: 042
     Dates: start: 20100921

REACTIONS (1)
  - TROPONIN I INCREASED [None]
